FAERS Safety Report 10782246 (Version 1)
Quarter: 2015Q1

REPORT INFORMATION
  Report Type: Spontaneous
  Country: US (occurrence: US)
  Receive Date: 20150210
  Receipt Date: 20150210
  Transmission Date: 20150721
  Serious: No
  Sender: FDA-Public Use
  Company Number: US-GLAXOSMITHKLINE-A1083173A

PATIENT

DRUGS (5)
  1. PROPYLTHIOURACIL. [Concomitant]
     Active Substance: PROPYLTHIOURACIL
  2. EQUATE NICOTINE [Suspect]
     Active Substance: NICOTINE
     Indication: EX-TOBACCO USER
     Dates: start: 20140610, end: 20140612
  3. WARFARIN [Concomitant]
     Active Substance: WARFARIN
  4. ATENOLOL. [Concomitant]
     Active Substance: ATENOLOL
  5. NAPROXEN SODIUM. [Concomitant]
     Active Substance: NAPROXEN SODIUM

REACTIONS (2)
  - Application site urticaria [Recovered/Resolved]
  - Application site pain [Recovered/Resolved]
